FAERS Safety Report 23947583 (Version 1)
Quarter: 2024Q2

REPORT INFORMATION
  Report Type: Report from Study
  Country: US (occurrence: US)
  Receive Date: 20240606
  Receipt Date: 20240606
  Transmission Date: 20240716
  Serious: Yes (Other)
  Sender: FDA-Public Use
  Company Number: US-ABBVIE-5782082

PATIENT
  Sex: Female
  Weight: 98 kg

DRUGS (4)
  1. REFRESH OPTIVE MEGA-3 [Suspect]
     Active Substance: CARBOXYMETHYLCELLULOSE SODIUM\GLYCERIN\POLYSORBATE 80
     Indication: Dry eye
     Dosage: DOSE: 2 DROPS IN THE RIGHT EYE?FORM STRENGTH: GLYCERIN 10MG/ML;POLY 80 5MG/ML;CMC 5MG/ML
     Route: 047
     Dates: start: 20240528
  2. COUMADIN [Concomitant]
     Active Substance: WARFARIN SODIUM
     Indication: Intraocular pressure test
  3. DORZOLAMIDE [Concomitant]
     Active Substance: DORZOLAMIDE
     Indication: Intraocular pressure test
  4. SYSTANE COMPLETE [Concomitant]
     Active Substance: PROPYLENE GLYCOL
     Indication: Dry eye

REACTIONS (2)
  - Eye disorder [Unknown]
  - Vision blurred [Not Recovered/Not Resolved]

NARRATIVE: CASE EVENT DATE: 20240101
